FAERS Safety Report 4894171-0 (Version None)
Quarter: 2006Q1

REPORT INFORMATION
  Report Type: 
  Country: None (occurrence: None)
  Receive Date: 20060127
  Receipt Date: 20050916
  Transmission Date: 20060701
  Serious: Yes (Disabling, Other)
  Sender: FDA-Public Use
  Company Number: US-GLAXOSMITHKLINE-A0574556A

PATIENT
  Age: 37 Year
  Sex: Female

DRUGS (1)
  1. WELLBUTRIN [Suspect]
     Route: 048
     Dates: start: 20050914

REACTIONS (6)
  - BURNING SENSATION [None]
  - HEAD TITUBATION [None]
  - HYPERSENSITIVITY [None]
  - HYPOAESTHESIA [None]
  - PAIN IN EXTREMITY [None]
  - TREMOR [None]
